FAERS Safety Report 17303923 (Version 3)
Quarter: 2020Q1

REPORT INFORMATION
  Report Type: Report from Study
  Country: US (occurrence: US)
  Receive Date: 20200122
  Receipt Date: 20200204
  Transmission Date: 20200409
  Serious: Yes (Hospitalization, Other)
  Sender: FDA-Public Use
  Company Number: US-GILEAD-2020-0447785

PATIENT
  Age: 64 Year
  Sex: Male

DRUGS (3)
  1. MEPRON [Concomitant]
     Active Substance: ATOVAQUONE
  2. ACYCLOVIR [ACICLOVIR] [Concomitant]
     Active Substance: ACYCLOVIR
  3. AXICABTAGENE CILOLEUCEL [Suspect]
     Active Substance: AXICABTAGENE CILOLEUCEL
     Indication: NON-HODGKIN^S LYMPHOMA
     Dosage: UNK
     Route: 042
     Dates: start: 20190709, end: 20190709

REACTIONS (12)
  - Balance disorder [Recovered/Resolved]
  - Dizziness [Recovered/Resolved]
  - Immunodeficiency [Not Recovered/Not Resolved]
  - Disorganised speech [Recovered/Resolved]
  - Lumbar puncture [Recovered/Resolved]
  - Pyrexia [Recovered/Resolved]
  - Blood pressure abnormal [Recovered/Resolved]
  - Vomiting [Recovered/Resolved]
  - Headache [Recovered/Resolved]
  - Weight decreased [Recovered/Resolved]
  - Hair texture abnormal [Not Recovered/Not Resolved]
  - Tremor [Recovered/Resolved]

NARRATIVE: CASE EVENT DATE: 201907
